FAERS Safety Report 25289629 (Version 1)
Quarter: 2025Q2

REPORT INFORMATION
  Report Type: Spontaneous
  Country: CH (occurrence: CH)
  Receive Date: 20250509
  Receipt Date: 20250509
  Transmission Date: 20250717
  Serious: Yes (Hospitalization)
  Sender: TEVA
  Company Number: None

PATIENT
  Age: 65 Year
  Sex: Male

DRUGS (15)
  1. VANCOCIN [Suspect]
     Active Substance: VANCOMYCIN HYDROCHLORIDE
     Indication: Product used for unknown indication
     Route: 065
     Dates: start: 20241219, end: 20241223
  2. PROGRAF [Interacting]
     Active Substance: TACROLIMUS
     Indication: Product used for unknown indication
     Route: 048
     Dates: start: 20241214, end: 20241215
  3. PROGRAF [Interacting]
     Active Substance: TACROLIMUS
     Indication: Product used for unknown indication
     Route: 048
     Dates: start: 20241216, end: 20241217
  4. PROGRAF [Interacting]
     Active Substance: TACROLIMUS
     Indication: Product used for unknown indication
     Dosage: INTRAVENOUS BOLUS
     Route: 065
     Dates: start: 20241220, end: 20241221
  5. PROGRAF [Interacting]
     Active Substance: TACROLIMUS
     Indication: Product used for unknown indication
     Dosage: BREAK FROM 24.12.24, FURTHER P.O. FROM 25.12.24 AFTER LEVEL DETERMINATION
     Route: 048
     Dates: start: 20241225
  6. PROGRAF [Interacting]
     Active Substance: TACROLIMUS
     Indication: Product used for unknown indication
     Route: 065
     Dates: start: 20241223, end: 20241223
  7. PROGRAF [Interacting]
     Active Substance: TACROLIMUS
     Indication: Product used for unknown indication
     Route: 048
     Dates: start: 20241210, end: 20241213
  8. PROGRAF [Interacting]
     Active Substance: TACROLIMUS
     Indication: Product used for unknown indication
     Dosage: INTRAVENOUS BOLUS
     Route: 065
     Dates: start: 20241222, end: 20241222
  9. PROGRAF [Interacting]
     Active Substance: TACROLIMUS
     Indication: Product used for unknown indication
     Dosage: INTRAVENOUS BOLUS
     Route: 065
     Dates: start: 20241219, end: 20241219
  10. ARCOXIA [Suspect]
     Active Substance: ETORICOXIB
     Indication: Product used for unknown indication
     Route: 048
     Dates: start: 20241220, end: 20241220
  11. ARCOXIA [Suspect]
     Active Substance: ETORICOXIB
     Indication: Product used for unknown indication
     Route: 048
     Dates: start: 20241225, end: 20241225
  12. ARCOXIA [Suspect]
     Active Substance: ETORICOXIB
     Indication: Product used for unknown indication
     Route: 048
     Dates: start: 20241226, end: 20241226
  13. NOXAFIL [Interacting]
     Active Substance: POSACONAZOLE
     Indication: Product used for unknown indication
     Route: 048
     Dates: start: 20250105
  14. ENTRESTO [Suspect]
     Active Substance: SACUBITRIL\VALSARTAN
     Indication: Product used for unknown indication
     Route: 048
     Dates: end: 20241223
  15. ENTRESTO [Suspect]
     Active Substance: SACUBITRIL\VALSARTAN
     Indication: Product used for unknown indication
     Route: 048
     Dates: start: 20241230

REACTIONS (4)
  - Nephropathy toxic [Recovering/Resolving]
  - Nephropathy toxic [Recovering/Resolving]
  - Drug interaction [Recovering/Resolving]
  - Drug level above therapeutic [Recovered/Resolved]

NARRATIVE: CASE EVENT DATE: 20241223
